FAERS Safety Report 6920630-2 (Version None)
Quarter: 2010Q3

REPORT INFORMATION
  Report Type: 
  Country: None (occurrence: None)
  Receive Date: 20100812
  Receipt Date: 20100712
  Transmission Date: 20110219
  Serious: Yes (Hospitalization)
  Sender: FDA-Public Use
  Company Number: IL-BAYER-201032326GPV

PATIENT
  Age: 83 Year
  Sex: Male
  Weight: 70 kg

DRUGS (5)
  1. NEXAVAR [Suspect]
     Indication: HEPATIC NEOPLASM MALIGNANT
     Route: 048
     Dates: start: 20100204, end: 20100405
  2. THYRXIN SOD.(INTERPRETED AS THYROXINE) [Concomitant]
     Indication: HYPOTHYROIDISM
     Route: 048
     Dates: start: 20090909
  3. BROTIZOLAM [Concomitant]
     Indication: GLAUCOMA
     Route: 048
     Dates: start: 20090527
  4. DIGOXIN [Concomitant]
     Indication: ATRIAL FIBRILLATION
     Route: 048
     Dates: start: 20080216
  5. GLIMEPIRIDE [Concomitant]
     Indication: DIABETES MELLITUS
     Route: 048
     Dates: start: 20080604

REACTIONS (1)
  - HYPOGLYCAEMIA [None]
